FAERS Safety Report 12215703 (Version 1)
Quarter: 2016Q1

REPORT INFORMATION
  Report Type: Report from Study
  Country: BR (occurrence: BR)
  Receive Date: 20160328
  Receipt Date: 20160328
  Transmission Date: 20160526
  Serious: Yes (Other)
  Sender: FDA-Public Use
  Company Number: BR-ABBVIE-16P-020-1591916-00

PATIENT
  Age: 29 Year
  Sex: Female

DRUGS (4)
  1. LAMIVUDINE W/ZIDOVUDINE [Suspect]
     Active Substance: LAMIVUDINE\ZIDOVUDINE
     Indication: HIV INFECTION
     Dosage: FIRST TRIMESTER EXPOSURE; PRIOR TO CONCEPTION
     Route: 048
     Dates: end: 20160105
  2. TENOFOVIR DISOPROXIL FUMARATE. [Suspect]
     Active Substance: TENOFOVIR DISOPROXIL FUMARATE
     Indication: HIV INFECTION
     Dosage: FIRST TRIMESTER EXPOSURE; PRIOR TO CONCEPTION
     Route: 048
     Dates: end: 20160105
  3. REYATAZ [Suspect]
     Active Substance: ATAZANAVIR SULFATE
     Indication: HIV INFECTION
     Dosage: FIRST TRIMESTER EXPOSURE; PRIOR TO CONCEPTION
     Route: 048
     Dates: end: 20160105
  4. NORVIR [Suspect]
     Active Substance: RITONAVIR
     Indication: HIV INFECTION
     Dosage: FIRST TRIMESTER EXPOSURE; PRIOR TO CONCEPTION
     Route: 048
     Dates: end: 20160105

REACTIONS (3)
  - Exposure during pregnancy [Unknown]
  - Abortion spontaneous [Unknown]
  - Foetal death [Unknown]

NARRATIVE: CASE EVENT DATE: 20160127
